FAERS Safety Report 17504918 (Version 1)
Quarter: 2020Q1

REPORT INFORMATION
  Report Type: Report from Study
  Country: US (occurrence: US)
  Receive Date: 20200305
  Receipt Date: 20200305
  Transmission Date: 20200409
  Serious: Yes (Death, Life-Threatening, Hospitalization, Other)
  Sender: FDA-Public Use
  Company Number: US-BRISTOL-MYERS SQUIBB COMPANY-BMS-2020-018995

PATIENT
  Age: 69 Year
  Sex: Female
  Weight: 129.3 kg

DRUGS (5)
  1. POLY ICLC [Suspect]
     Active Substance: HILTONOL
     Indication: MYELODYSPLASTIC SYNDROME
     Dosage: 1.8 MG ONCE
     Route: 058
     Dates: start: 20200116, end: 20200116
  2. ENOXAPARIN SODIUM. [Suspect]
     Active Substance: ENOXAPARIN SODIUM
     Indication: PRODUCT USED FOR UNKNOWN INDICATION
     Route: 065
  3. NIVOLUMAB [Suspect]
     Active Substance: NIVOLUMAB
     Indication: MYELODYSPLASTIC SYNDROME
     Dosage: 100 MG/MI VIAL, DAYS 1 AND DAY 15
     Route: 042
  4. CDX-1401 [Suspect]
     Active Substance: RASDEGAFUSP ALFA
     Indication: MYELODYSPLASTIC SYNDROME
     Dosage: 1 MG, ONCE INTRACUTANEOUSLY
     Route: 065
     Dates: start: 20200116, end: 20200116
  5. DECITABINE. [Suspect]
     Active Substance: DECITABINE
     Indication: MYELODYSPLASTIC SYNDROME
     Route: 065

REACTIONS (3)
  - Cardiac arrest [Fatal]
  - Shock haemorrhagic [Unknown]
  - Haematoma [Unknown]

NARRATIVE: CASE EVENT DATE: 20200229
